FAERS Safety Report 6739458-1 (Version None)
Quarter: 2010Q2

REPORT INFORMATION
  Report Type: 
  Country: None (occurrence: None)
  Receive Date: 20100525
  Receipt Date: 20100514
  Transmission Date: 20101027
  Serious: Yes (Other)
  Sender: FDA-Public Use
  Company Number: US-BAXTER-2010BH013232

PATIENT
  Age: 68 Year
  Sex: Male

DRUGS (3)
  1. GAMMAGARD S/D [Suspect]
     Indication: DRUG USE FOR UNKNOWN INDICATION
     Route: 065
     Dates: start: 20100317, end: 20100317
  2. GAMMAGARD S/D [Suspect]
     Route: 065
     Dates: start: 20100414, end: 20100414
  3. GAMMAGARD S/D [Suspect]
     Route: 065
     Dates: start: 20100512, end: 20100512

REACTIONS (4)
  - BACK PAIN [None]
  - MUSCULOSKELETAL PAIN [None]
  - PAIN IN EXTREMITY [None]
  - URINARY TRACT INFLAMMATION [None]
